FAERS Safety Report 4296333-2 (Version None)
Quarter: 2004Q1

REPORT INFORMATION
  Report Type: 
  Country: None (occurrence: None)
  Receive Date: 20040213
  Receipt Date: 20040213
  Transmission Date: 20041129
  Serious: Yes (Hospitalization)
  Sender: FDA-Public Use
  Company Number: None

PATIENT
  Sex: Female
  Weight: 81.6475 kg

DRUGS (3)
  1. ECOTRIN [Suspect]
     Indication: ANALGESIC EFFECT
     Dosage: 6-7 PER DAY PO
     Route: 048
  2. DIOVAN HCT [Concomitant]
  3. DIET PILLS [Concomitant]

REACTIONS (2)
  - DIZZINESS [None]
  - GASTROINTESTINAL HAEMORRHAGE [None]
